FAERS Safety Report 10048419 (Version 3)
Quarter: 2014Q2

REPORT INFORMATION
  Report Type: Spontaneous
  Country: JP (occurrence: JP)
  Receive Date: 20140331
  Receipt Date: 20140423
  Transmission Date: 20141212
  Serious: Yes (Hospitalization, Disabling)
  Sender: FDA-Public Use
  Company Number: JP-B.I. PHARMACEUTICALS,INC./RIDGEFIELD-2014-BI-13670NB

PATIENT
  Age: 77 Year
  Sex: Male
  Weight: 48.1 kg

DRUGS (11)
  1. TRAZENTA [Suspect]
     Indication: DIABETES MELLITUS
     Dosage: 5 MG
     Route: 048
     Dates: start: 20140123, end: 20140221
  2. EQUA [Suspect]
     Indication: PRODUCT USED FOR UNKNOWN INDICATION
     Dosage: 100 MG
     Route: 048
     Dates: start: 2013, end: 20140122
  3. SUREPOST [Suspect]
     Indication: PRODUCT USED FOR UNKNOWN INDICATION
     Dosage: 1.5 MG
     Route: 048
     Dates: start: 20131206, end: 20140221
  4. SEIBULE [Suspect]
     Indication: PRODUCT USED FOR UNKNOWN INDICATION
     Dosage: 150 MG
     Route: 048
     Dates: start: 20131206, end: 20140221
  5. MICARDIS / TELMISARTAN [Concomitant]
     Dosage: 40 MG
     Route: 065
  6. URSO / URSODEOXYCHOLIC ACID [Concomitant]
     Dosage: 300 MG
     Route: 065
  7. ZYLORIC / ALLOPURINOL [Concomitant]
     Dosage: 100 MG
     Route: 065
  8. NORVASC / AMLODIPINE BESILATE [Concomitant]
     Dosage: 5 MG
     Route: 065
  9. LANIRAPID / METILDIGOXIN [Concomitant]
     Dosage: 0.1 MG
     Route: 065
  10. WARFARIN / WARFARIN POTASSIUM [Concomitant]
     Dosage: 2.5 MG
     Route: 065
  11. ALLOPURINOL / ALLOPURINOL [Concomitant]
     Route: 065

REACTIONS (1)
  - Interstitial lung disease [Not Recovered/Not Resolved]
